FAERS Safety Report 25625417 (Version 1)
Quarter: 2025Q3

REPORT INFORMATION
  Report Type: Spontaneous
  Country: EU (occurrence: EU)
  Receive Date: 20250731
  Receipt Date: 20250731
  Transmission Date: 20251020
  Serious: Yes (Other)
  Sender: CELLTRION
  Company Number: EU-002147023-NVSC2025AT066098

PATIENT

DRUGS (4)
  1. RITUXIMAB [Suspect]
     Active Substance: RITUXIMAB
     Indication: Hypersensitivity
     Route: 065
     Dates: start: 202105, end: 202105
  2. FINGOLIMOD [Suspect]
     Active Substance: FINGOLIMOD
     Indication: Multiple sclerosis
     Route: 065
     Dates: start: 2019
  3. KESIMPTA [Suspect]
     Active Substance: OFATUMUMAB
     Indication: Multiple sclerosis
     Route: 065
  4. OCRELIZUMAB [Suspect]
     Active Substance: OCRELIZUMAB
     Indication: Hypersensitivity
     Route: 065
     Dates: start: 202105, end: 202105

REACTIONS (4)
  - Multiple sclerosis [Unknown]
  - Multiple sclerosis relapse [Unknown]
  - Hemiparesis [Unknown]
  - Intentional product use issue [Unknown]
